FAERS Safety Report 15350199 (Version 2)
Quarter: 2018Q3

REPORT INFORMATION
  Report Type: Report from Study
  Country: None (occurrence: US)
  Receive Date: 20180905
  Receipt Date: 20180907
  Transmission Date: 20181010
  Serious: Yes (Other)
  Sender: FDA-Public Use
  Company Number: US-ABBVIE-18K-163-2435219-00

PATIENT
  Sex: Female

DRUGS (1)
  1. HUMIRA [Suspect]
     Active Substance: ADALIMUMAB
     Indication: PSORIASIS
     Route: 058
     Dates: start: 20170803, end: 2018

REACTIONS (5)
  - Blood iron decreased [Not Recovered/Not Resolved]
  - Foot deformity [Unknown]
  - Tuberculin test positive [Recovered/Resolved]
  - Psoriasis [Unknown]
  - Blood potassium decreased [Not Recovered/Not Resolved]
